FAERS Safety Report 6252814-3 (Version None)
Quarter: 2009Q2

REPORT INFORMATION
  Report Type: 
  Country: None (occurrence: None)
  Receive Date: 20090629
  Receipt Date: 20090624
  Transmission Date: 20091009
  Serious: Yes (Other)
  Sender: FDA-Public Use
  Company Number: CERD-1000012

PATIENT
  Age: 40 Year
  Sex: Female
  Weight: 61.2 kg

DRUGS (1)
  1. CEREDASE [Suspect]
     Indication: GAUCHER'S DISEASE
     Dosage: INTRAVENOUS
     Route: 042
     Dates: start: 19940110, end: 19980101

REACTIONS (8)
  - ALANINE AMINOTRANSFERASE INCREASED [None]
  - ASPARTATE AMINOTRANSFERASE INCREASED [None]
  - ATRIAL FIBRILLATION [None]
  - BLOOD PRESSURE INCREASED [None]
  - HEPATITIS C POSITIVE [None]
  - INFUSION RELATED REACTION [None]
  - INFUSION SITE PAIN [None]
  - URTICARIA CHRONIC [None]
